FAERS Safety Report 19166748 (Version 1)
Quarter: 2021Q2

REPORT INFORMATION
  Report Type: Spontaneous
  Country: TR (occurrence: TR)
  Receive Date: 20210421
  Receipt Date: 20210421
  Transmission Date: 20210717
  Serious: Yes (Other)
  Sender: FDA-Public Use
  Company Number: TR-ROCHE-2811591

PATIENT
  Age: 48 Year
  Sex: Female
  Weight: 52 kg

DRUGS (3)
  1. BEVACIZUMAB. [Suspect]
     Active Substance: BEVACIZUMAB
     Indication: COLORECTAL CANCER
     Dosage: ASG FOLFOX 6 BEVACIZUMAB
     Route: 065
     Dates: start: 20180510
  2. BEVACIZUMAB. [Suspect]
     Active Substance: BEVACIZUMAB
     Dosage: FOLFORINOX ? FLAKON?BEVACIZUMAB 14 CYCLES
     Route: 065
     Dates: start: 20191104, end: 20200615
  3. BEVACIZUMAB. [Suspect]
     Active Substance: BEVACIZUMAB
     Dosage: FOLFIRINOX?FLAKON?BEVACIZUMAB
     Route: 065
     Dates: start: 20200901, end: 20200923

REACTIONS (6)
  - Pulmonary mass [Recovering/Resolving]
  - Metastases to liver [Unknown]
  - Anastomotic leak [Unknown]
  - Atelectasis [Recovering/Resolving]
  - Fistula [Recovered/Resolved]
  - Nodule [Unknown]

NARRATIVE: CASE EVENT DATE: 201905
